FAERS Safety Report 15104173 (Version 1)
Quarter: 2018Q2

REPORT INFORMATION
  Report Type: Spontaneous
  Country: US (occurrence: US)
  Receive Date: 20180611
  Receipt Date: 20180611
  Transmission Date: 20180711
  Serious: Yes (Other)
  Sender: FDA-Public Use
  Company Number: None

PATIENT
  Age: 49 Year
  Sex: Female
  Weight: 80.1 kg

DRUGS (5)
  1. DULOXETINE. [Concomitant]
     Active Substance: DULOXETINE
  2. TOPIRAMATE. [Concomitant]
     Active Substance: TOPIRAMATE
  3. BOTULINUM TOXIN A [Suspect]
     Active Substance: BOTULINUM TOXIN TYPE A
     Indication: BRUXISM
     Dosage: ?          QUANTITY:2 DF DOSAGE FORM;OTHER FREQUENCY:SIX WEEKS;?
     Route: 030
     Dates: start: 20180312, end: 20180529
  4. ELIQUIS [Concomitant]
     Active Substance: APIXABAN
  5. BUPROPRION [Concomitant]
     Active Substance: BUPROPION

REACTIONS (1)
  - Transient ischaemic attack [None]

NARRATIVE: CASE EVENT DATE: 20180320
